FAERS Safety Report 9851036 (Version 1)
Quarter: 2014Q1

REPORT INFORMATION
  Report Type: Spontaneous
  Country: US (occurrence: US)
  Receive Date: 20140128
  Receipt Date: 20140128
  Transmission Date: 20141002
  Serious: No
  Sender: FDA-Public Use
  Company Number: US-DYAX CORP.-2013DX000087

PATIENT
  Age: 42 Year
  Sex: Female
  Weight: 71.28 kg

DRUGS (2)
  1. KALBITOR [Suspect]
     Indication: HEREDITARY ANGIOEDEMA
     Route: 058
     Dates: start: 20130501, end: 20130501
  2. KALBITOR [Suspect]
     Route: 058
     Dates: start: 201211

REACTIONS (3)
  - Dysgeusia [Recovered/Resolved]
  - Nausea [Recovered/Resolved]
  - Vomiting [Recovered/Resolved]
